FAERS Safety Report 17166383 (Version 15)
Quarter: 2022Q3

REPORT INFORMATION
  Report Type: Report from Study
  Country: CN (occurrence: CN)
  Receive Date: 20191217
  Receipt Date: 20220713
  Transmission Date: 20221027
  Serious: Yes (Hospitalization)
  Sender: FDA-Public Use
  Company Number: NVSC2019CN057966

PATIENT
  Age: 48 Year
  Sex: Female
  Weight: 66.5 kg

DRUGS (32)
  1. LETROZOLE [Suspect]
     Active Substance: LETROZOLE
     Indication: HER2 negative breast cancer
     Dosage: 2.5 MG, QD (DAILY)
     Route: 048
     Dates: start: 20190424
  2. RIBOCICLIB [Suspect]
     Active Substance: RIBOCICLIB
     Indication: HER2 negative breast cancer
     Dosage: 600 MG, Q3W
     Route: 048
     Dates: start: 20190424, end: 20191126
  3. GOSERELIN [Suspect]
     Active Substance: GOSERELIN
     Indication: HER2 negative breast cancer
     Dosage: 3.6 MG, QMO (EVERY MONTH)
     Route: 058
     Dates: start: 20190424
  4. ALBUMIN HUMAN [Concomitant]
     Active Substance: ALBUMIN HUMAN
     Indication: Hypoalbuminaemia
     Dosage: 10 G, QD
     Route: 065
     Dates: start: 20191201, end: 20191202
  5. RECOMBINANT HUMAN GRANULOCYTE COLONY STIMULAT [Concomitant]
     Indication: Neutrophil count decreased
     Dosage: 300 UG, QD
     Route: 058
     Dates: start: 20191202, end: 20191204
  6. RECOMBINANT HUMAN GRANULOCYTE COLONY STIMULAT [Concomitant]
     Indication: White blood cell count decreased
  7. OPRELVEKIN [Concomitant]
     Active Substance: OPRELVEKIN
     Indication: Product used for unknown indication
     Dosage: 113 MG, QD
     Route: 058
     Dates: start: 20191202
  8. OPRELVEKIN [Concomitant]
     Active Substance: OPRELVEKIN
     Dosage: 113 MG, QD
     Route: 058
     Dates: start: 20191203
  9. SODIUM CHLORIDE [Concomitant]
     Active Substance: SODIUM CHLORIDE
     Indication: Electrolyte imbalance
     Dosage: 2.3 G, QD
     Route: 065
     Dates: start: 20191130, end: 20191130
  10. SODIUM CHLORIDE [Concomitant]
     Active Substance: SODIUM CHLORIDE
     Dosage: 10 %
     Route: 065
     Dates: start: 20191202, end: 20191203
  11. SODIUM CHLORIDE [Concomitant]
     Active Substance: SODIUM CHLORIDE
     Dosage: 0.9 %, Q12H
     Route: 065
     Dates: start: 20191201
  12. SPLEEN EXTRACT, PROTEINFREE [Concomitant]
     Indication: Immunisation
     Dosage: 10 MG, QD
     Route: 030
     Dates: start: 20191130
  13. ALBUTEROL SULFATE [Concomitant]
     Active Substance: ALBUTEROL SULFATE
     Indication: Product used for unknown indication
     Dosage: 10 MG, TID
     Route: 065
     Dates: start: 20191130
  14. ALBUMIN HUMAN [Concomitant]
     Active Substance: ALBUMIN HUMAN
     Indication: Hypoalbuminaemia
     Dosage: UNK
     Route: 065
     Dates: start: 20191201, end: 20191205
  15. MEDROXOL [Concomitant]
     Indication: Product used for unknown indication
     Dosage: UNK
     Route: 065
     Dates: start: 20191212
  16. LORATADINE [Concomitant]
     Active Substance: LORATADINE
     Indication: Dermatitis allergic
     Dosage: UNK
     Route: 065
     Dates: start: 20191204, end: 20191212
  17. RIVAROXABAN [Concomitant]
     Active Substance: RIVAROXABAN
     Indication: Mesenteric vein thrombosis
     Dosage: UNK
     Route: 065
     Dates: start: 20191204, end: 20191212
  18. AESCUVEN [Concomitant]
     Indication: Mesenteric vein thrombosis
     Dosage: UNK
     Route: 065
     Dates: start: 20191204
  19. VITAMIN C [Concomitant]
     Active Substance: ASCORBIC ACID
     Indication: Dermatitis allergic
     Dosage: UNK
     Route: 065
     Dates: start: 20191204, end: 20191204
  20. CALCIUM GLUCONATE [Concomitant]
     Active Substance: CALCIUM GLUCONATE
     Indication: Dermatitis allergic
     Dosage: UNK
     Route: 065
     Dates: start: 20191204, end: 20191204
  21. MOMETASONE FUROATE [Concomitant]
     Active Substance: MOMETASONE FUROATE
     Indication: Dermatitis allergic
     Dosage: UNK
     Route: 065
     Dates: start: 20191204, end: 20191212
  22. PROMETHAZINE HYDROCHLORIDE [Concomitant]
     Active Substance: PROMETHAZINE HYDROCHLORIDE
     Indication: Prophylaxis
     Dosage: UNK
     Route: 065
     Dates: start: 20191202, end: 20191202
  23. POTASSIUM CITRATE [Concomitant]
     Active Substance: POTASSIUM CITRATE
     Indication: Electrolyte imbalance
     Dosage: UNK
     Route: 065
     Dates: start: 20191206
  24. POTASSIUM CITRATE [Concomitant]
     Active Substance: POTASSIUM CITRATE
     Indication: Hypokalaemia
  25. POTASSIUM CHLORIDE [Concomitant]
     Active Substance: POTASSIUM CHLORIDE
     Indication: Hypokalaemia
     Dosage: UNK
     Route: 065
     Dates: start: 20191203, end: 20191204
  26. POTASSIUM CHLORIDE [Concomitant]
     Active Substance: POTASSIUM CHLORIDE
     Indication: Electrolyte imbalance
  27. BUDESONIDE [Concomitant]
     Active Substance: BUDESONIDE
     Indication: Muscle spasms
     Dosage: UNK
     Route: 065
     Dates: start: 20191130, end: 20191204
  28. DOXOFYLLINE [Concomitant]
     Active Substance: DOXOFYLLINE
     Indication: Muscle spasms
     Dosage: 0.3 G, UNK
     Route: 042
     Dates: start: 20191201, end: 20191211
  29. GANCICLOVIR SODIUM [Concomitant]
     Active Substance: GANCICLOVIR SODIUM
     Indication: Anti-infective therapy
     Dosage: 0.25 G
     Route: 042
     Dates: start: 20191201, end: 20191211
  30. MOXIFLOXACIN HYDROCHLORIDE [Concomitant]
     Active Substance: MOXIFLOXACIN HYDROCHLORIDE
     Indication: Anti-infective therapy
     Dosage: 0.4 G, QD2SDO
     Route: 042
     Dates: start: 20191201, end: 20191211
  31. IPRATROPIUM BROMIDE [Concomitant]
     Active Substance: IPRATROPIUM BROMIDE
     Indication: Muscle spasms
     Dosage: 0.5 MG, TID
     Route: 065
     Dates: start: 20191130, end: 20191212
  32. ACETYLCYSTEINE [Concomitant]
     Active Substance: ACETYLCYSTEINE
     Indication: Productive cough
     Dosage: UNK
     Route: 065
     Dates: start: 20191130, end: 20191204

REACTIONS (1)
  - Pneumonia [Not Recovered/Not Resolved]

NARRATIVE: CASE EVENT DATE: 20191130
